FAERS Safety Report 5608402-2 (Version None)
Quarter: 2008Q1

REPORT INFORMATION
  Report Type: 
  Country: None (occurrence: None)
  Receive Date: 20080125
  Receipt Date: 20080115
  Transmission Date: 20080703
  Serious: Yes (Death)
  Sender: FDA-Public Use
  Company Number: 2008-00127

PATIENT
  Age: 45 Year
  Sex: Male

DRUGS (3)
  1. VELCADE [Suspect]
     Indication: MULTIPLE MYELOMA
     Dosage: 1.30 MG/M2, INTRAVENOUS
     Route: 042
     Dates: start: 20071101
  2. DEXAMETHASONE TAB [Concomitant]
  3. MELPHALAN [Concomitant]

REACTIONS (1)
  - PULMONARY EMBOLISM [None]
